FAERS Safety Report 4995592-8 (Version None)
Quarter: 2006Q1

REPORT INFORMATION
  Report Type: 
  Country: None (occurrence: None)
  Receive Date: 20060315
  Receipt Date: 20051201
  Transmission Date: 20060701
  Serious: Yes (Other)
  Sender: FDA-Public Use
  Company Number: 427419

PATIENT
  Age: 51 Year
  Sex: Female

DRUGS (2)
  1. BONIVA [Suspect]
     Indication: OSTEOPOROSIS
     Dosage: 150 MG 1 PER MONTH ORAL
     Route: 048
     Dates: start: 20050708, end: 20050908
  2. MULTIVITAMIN (MULTIVITAMIN) [Concomitant]

REACTIONS (5)
  - ARTHRALGIA [None]
  - BLOOD THYROID STIMULATING HORMONE DECREASED [None]
  - FLUID RETENTION [None]
  - GASTROINTESTINAL PAIN [None]
  - MYALGIA [None]
